FAERS Safety Report 9834530 (Version 1)
Quarter: 2014Q1

REPORT INFORMATION
  Report Type: Report from Study
  Country: NL (occurrence: NL)
  Receive Date: 20140122
  Receipt Date: 20140122
  Transmission Date: 20141002
  Serious: Yes (Death, Hospitalization)
  Sender: FDA-Public Use
  Company Number: NL-SA-2014SA007726

PATIENT
  Age: 66 Year
  Sex: Male
  Weight: 86 kg

DRUGS (8)
  1. CABAZITAXEL [Suspect]
     Indication: PROSTATE CANCER
     Route: 042
     Dates: start: 20120120, end: 20120120
  2. ARTHROTEC [Concomitant]
     Dosage: FREQUENCY: 2DD1
  3. FENTANYL [Concomitant]
     Dosage: 37 MCG/HR Q3D
  4. LACTULOSE [Concomitant]
     Dosage: 2 DD 15 ML
  5. OMEPRAZOLE [Concomitant]
     Dosage: FREQUENCY: 1DD1
  6. OXYNORM [Concomitant]
     Dosage: ZN
  7. PREDNISON [Concomitant]
     Dosage: FREQUENCY: 2DD 10 MG
  8. TAMSULOSIN [Concomitant]
     Dosage: FREQUENCY: 1DD1

REACTIONS (1)
  - Pain [Fatal]
